FAERS Safety Report 4475370-9 (Version None)
Quarter: 2004Q4

REPORT INFORMATION
  Report Type: 
  Country: None (occurrence: None)
  Receive Date: 20041014
  Receipt Date: 20041014
  Transmission Date: 20050328
  Serious: Yes (Death)
  Sender: FDA-Public Use
  Company Number: None

PATIENT
  Age: 59 Year
  Sex: Female
  Weight: 59.8748 kg

DRUGS (6)
  1. CPT-11 50MG/M2 [Suspect]
     Indication: SMALL CELL LUNG CANCER STAGE UNSPECIFIED
     Dosage: 79MG  D1/D8 Q21
     Dates: start: 20041004
  2. CARBOPLATIN [Suspect]
     Indication: SMALL CELL LUNG CANCER STAGE UNSPECIFIED
     Dosage: 483MG  D1 Q21
     Dates: start: 20041004
  3. LASIX [Concomitant]
  4. K-DUR 10 [Concomitant]
  5. AVINZA [Concomitant]
  6. PEPCID [Concomitant]

REACTIONS (4)
  - FATIGUE [None]
  - NEUTROPHIL COUNT DECREASED [None]
  - PAIN [None]
  - WHITE BLOOD CELL COUNT DECREASED [None]
